FAERS Safety Report 15142829 (Version 2)
Quarter: 2018Q3

REPORT INFORMATION
  Report Type: Spontaneous
  Country: DE (occurrence: DE)
  Receive Date: 20180713
  Receipt Date: 20180718
  Transmission Date: 20181010
  Serious: Yes (Other)
  Sender: FDA-Public Use
  Company Number: DE-PFIZER INC-2018277943

PATIENT
  Age: 89 Year
  Sex: Male
  Weight: 68 kg

DRUGS (7)
  1. CONCOR [Suspect]
     Active Substance: BISOPROLOL FUMARATE
     Dosage: UNK
     Route: 065
  2. DAPSON?FATOL [Suspect]
     Active Substance: DAPSONE
     Dosage: 50 MG, QD
     Route: 048
     Dates: start: 201708, end: 20180323
  3. PREDNISOLONE. [Concomitant]
     Active Substance: PREDNISOLONE
     Dosage: UNK
  4. DELIX (RAMIPRIL) [Suspect]
     Active Substance: RAMIPRIL
     Dosage: UNK
     Route: 065
  5. DAPSON?FATOL [Suspect]
     Active Substance: DAPSONE
     Indication: PEMPHIGOID
     Dosage: 100 MG, QD
     Route: 048
     Dates: end: 201708
  6. CORTISONE [Concomitant]
     Active Substance: CORTISONE\HYDROCORTISONE
     Dosage: UNK
  7. PANTOPRAZOLE [Suspect]
     Active Substance: PANTOPRAZOLE
     Dosage: UNK
     Route: 065

REACTIONS (2)
  - Ocular icterus [Unknown]
  - Transaminases increased [Unknown]
